FAERS Safety Report 21039967 (Version 1)
Quarter: 2022Q3

REPORT INFORMATION
  Report Type: Spontaneous
  Country: AU (occurrence: AU)
  Receive Date: 20220704
  Receipt Date: 20220704
  Transmission Date: 20221026
  Serious: No
  Sender: FDA-Public Use
  Company Number: AU-GLAXOSMITHKLINE-AU2022APC100669

PATIENT

DRUGS (1)
  1. SOTROVIMAB [Suspect]
     Active Substance: SOTROVIMAB
     Indication: COVID-19
     Dosage: 500 MG, Z, 500MG OVER 10 MIN AND AFTER 40 MIN

REACTIONS (5)
  - Musculoskeletal pain [Recovered/Resolved]
  - Spinal pain [Recovered/Resolved]
  - Dizziness [Unknown]
  - Incorrect drug administration rate [Unknown]
  - Exposure during pregnancy [Unknown]

NARRATIVE: CASE EVENT DATE: 20220118
